FAERS Safety Report 5465576-4 (Version None)
Quarter: 2007Q3

REPORT INFORMATION
  Report Type: 
  Country: None (occurrence: None)
  Receive Date: 20070924
  Receipt Date: 19980610
  Transmission Date: 20080115
  Serious: Yes (Death)
  Sender: FDA-Public Use
  Company Number: DE-PFIZER INC-2006120848

PATIENT
  Sex: Female

DRUGS (8)
  1. IRINOTECAN HCL [Suspect]
     Indication: COLORECTAL CANCER
     Dosage: DAILY DOSE:350MG/M2
     Route: 042
     Dates: start: 19980211, end: 19980211
  2. IRINOTECAN HCL [Suspect]
     Dosage: DAILY DOSE:300MG/M2
     Route: 042
     Dates: start: 19980519, end: 19980519
  3. ATROPINE [Concomitant]
     Dates: start: 19980211, end: 19980520
  4. METRONIDAZOLE [Concomitant]
     Dates: start: 19980518
  5. MIDAZOLAM HCL [Concomitant]
     Dates: start: 19980530
  6. MORPHINE [Concomitant]
     Dates: start: 19980530
  7. OCTREOTIDE ACETATE [Concomitant]
     Dates: start: 19980522, end: 19980528
  8. OFLOXACIN [Concomitant]
     Dates: start: 19980526, end: 19980604

REACTIONS (1)
  - MULTI-ORGAN FAILURE [None]
